FAERS Safety Report 7346559-6 (Version None)
Quarter: 2011Q1

REPORT INFORMATION
  Report Type: 
  Country: None (occurrence: None)
  Receive Date: 20110311
  Receipt Date: 20110304
  Transmission Date: 20110831
  Serious: Yes (Hospitalization)
  Sender: FDA-Public Use
  Company Number: IT-JNJFOC-20110303117

PATIENT
  Sex: Female

DRUGS (7)
  1. ADRONAT [Concomitant]
     Route: 065
  2. TRITTICO [Concomitant]
     Route: 065
  3. HALCION [Concomitant]
     Route: 065
  4. MEMAC [Concomitant]
     Route: 065
  5. SERENASE [Suspect]
     Indication: DEMENTIA ALZHEIMER'S TYPE
     Route: 048
  6. ZOLOFT [Concomitant]
     Route: 065
  7. ASPIRIN [Concomitant]
     Route: 065

REACTIONS (2)
  - ASTHENIA [None]
  - BALANCE DISORDER [None]
